FAERS Safety Report 6076321-6 (Version None)
Quarter: 2009Q1

REPORT INFORMATION
  Report Type: 
  Country: None (occurrence: None)
  Receive Date: 20090209
  Receipt Date: 20090127
  Transmission Date: 20090719
  Serious: Yes (Death)
  Sender: FDA-Public Use
  Company Number: KV200900132

PATIENT
  Age: 77 Year
  Sex: Male
  Weight: 93.9 kg

DRUGS (2)
  1. MORPHINE SULFATE [Suspect]
     Indication: CANCER PAIN
     Dosage: 15 MG, BID, ORAL; 15 MG, ONCE EVERY HOUR, ORAL
     Route: 048
     Dates: start: 20080901, end: 20081001
  2. MORPHINE SULFATE [Suspect]
     Indication: CANCER PAIN
     Dosage: 15 MG, BID, ORAL; 15 MG, ONCE EVERY HOUR, ORAL
     Route: 048
     Dates: start: 20081001, end: 20081013

REACTIONS (3)
  - MALIGNANT MELANOMA [None]
  - MALIGNANT NEOPLASM PROGRESSION [None]
  - PRODUCT QUALITY ISSUE [None]
